FAERS Safety Report 11566374 (Version 4)
Quarter: 2015Q4

REPORT INFORMATION
  Report Type: Report from Study
  Country: CA (occurrence: CA)
  Receive Date: 20150929
  Receipt Date: 20151118
  Transmission Date: 20160304
  Serious: Yes (Death, Other)
  Sender: FDA-Public Use
  Company Number: CA-ROCHE-1614781

PATIENT
  Age: 65 Year
  Sex: Male

DRUGS (4)
  1. DEXAMETHASONE. [Concomitant]
     Active Substance: DEXAMETHASONE
  2. DILANTIN [Concomitant]
     Active Substance: PHENYTOIN
  3. ZANTAC [Concomitant]
     Active Substance: RANITIDINE HYDROCHLORIDE
  4. AVASTIN [Suspect]
     Active Substance: BEVACIZUMAB
     Indication: GLIOBLASTOMA
     Route: 042
     Dates: start: 20150716, end: 20150910

REACTIONS (9)
  - Death [Fatal]
  - Benign neoplasm [Not Recovered/Not Resolved]
  - Sinus disorder [Recovering/Resolving]
  - Nasopharyngitis [Recovered/Resolved]
  - Oxygen saturation decreased [Unknown]
  - Decreased activity [Unknown]
  - Lacrimation increased [Not Recovered/Not Resolved]
  - Poor venous access [Unknown]
  - Ocular discomfort [Not Recovered/Not Resolved]

NARRATIVE: CASE EVENT DATE: 20150827
